FAERS Safety Report 10039250 (Version 1)
Quarter: 2014Q1

REPORT INFORMATION
  Report Type: Report from Study
  Country: DE (occurrence: DE)
  Receive Date: 20140326
  Receipt Date: 20140326
  Transmission Date: 20141002
  Serious: Yes (Hospitalization, Other)
  Sender: FDA-Public Use
  Company Number: DE-VERTEX PHARMACEUTICALS INC-2014-001572

PATIENT
  Age: 70 Year
  Sex: Female

DRUGS (13)
  1. VX-950 (TELAPREVIR) [Suspect]
     Indication: CHRONIC HEPATITIS C
     Dosage: 2250 MG, QD
     Route: 048
     Dates: start: 20130910, end: 20131203
  2. Z-PEGYLATED INTERFERON-2A [Suspect]
     Indication: CHRONIC HEPATITIS C
     Dosage: 180 ?G, QW
     Route: 058
     Dates: start: 20130910, end: 20131205
  3. Z-RIBAVIRIN [Suspect]
     Indication: CHRONIC HEPATITIS C
     Dosage: 800 MG, UNK
     Route: 048
     Dates: start: 20130910, end: 20131209
  4. PEGINTERFERON LAMBDA-1A [Suspect]
     Indication: CHRONIC HEPATITIS C
     Dosage: 180 ?G, QW
     Route: 058
     Dates: start: 20130910, end: 20131205
  5. ESTRADOT [Concomitant]
     Dates: start: 2002
  6. FAKTU [Concomitant]
     Dates: start: 20130917
  7. PARACETAMOL [Concomitant]
     Dosage: DOSAGE FORM: UNKNOWN
     Dates: start: 20130926
  8. PANTOZOL [Concomitant]
     Dates: start: 20130926
  9. UREA [Concomitant]
     Dates: start: 20131023
  10. METOCLOPRAMIDE [Concomitant]
     Dates: start: 20130917
  11. VOMEX A [Concomitant]
     Dates: start: 20131204
  12. CETIRIZINE [Concomitant]
  13. KALINOR (POTASSIUM BICARBONATE, POTASSIUM CITRATE) [Concomitant]

REACTIONS (2)
  - Transaminases increased [Recovered/Resolved]
  - Jaundice [Recovered/Resolved]
